FAERS Safety Report 8531786 (Version 2)
Quarter: 2013Q4

REPORT INFORMATION
  Report Type: Spontaneous
  Country: CO (occurrence: CO)
  Receive Date: 20120426
  Receipt Date: 20131030
  Transmission Date: 20140711
  Serious: Yes (Other)
  Sender: FDA-Public Use
  Company Number: CO-PFIZER INC-2012015292

PATIENT
  Age: 82 Year
  Sex: Male

DRUGS (4)
  1. LYRICA [Suspect]
     Indication: NEURALGIA
     Dosage: 300 MG, AS NEEDED
     Route: 048
     Dates: start: 20100101
  2. FUROSEMIDE [Concomitant]
  3. GLIBENCLAMIDE [Concomitant]
  4. METFORMIN [Concomitant]

REACTIONS (1)
  - Hypersomnia [Not Recovered/Not Resolved]
